FAERS Safety Report 11813314 (Version 1)
Quarter: 2015Q4

REPORT INFORMATION
  Report Type: Spontaneous
  Country: US (occurrence: None)
  Receive Date: 20151207
  Receipt Date: 20151207
  Transmission Date: 20160305
  Serious: Yes (Life-Threatening, Hospitalization)
  Sender: FDA-Public Use
  Company Number: None

PATIENT
  Age: 62 Year
  Sex: Female

DRUGS (1)
  1. ENBREL [Suspect]
     Active Substance: ETANERCEPT
     Indication: RHEUMATOID ARTHRITIS
     Dosage: 50 MG/ML
     Route: 058
     Dates: start: 20150910, end: 20151023

REACTIONS (3)
  - Myocardial infarction [None]
  - Septic shock [None]
  - Urinary tract infection [None]

NARRATIVE: CASE EVENT DATE: 20151023
